FAERS Safety Report 9993542 (Version 1)
Quarter: 2014Q1

REPORT INFORMATION
  Report Type: Spontaneous
  Country: JP (occurrence: JP)
  Receive Date: 20140310
  Receipt Date: 20140310
  Transmission Date: 20141002
  Serious: Yes (Death, Other)
  Sender: FDA-Public Use
  Company Number: JP-009507513-1403JPN004321

PATIENT
  Age: 75 Year
  Sex: Female

DRUGS (3)
  1. PEGINTRON [Suspect]
     Dosage: 100 MICROGRAM, ONCE A WEEK
     Route: 058
  2. REBETOL [Suspect]
     Dosage: 200 MG, ONCE A DAY
     Route: 048
  3. SIMEPREVIR [Suspect]
     Dosage: 100 MG, QD
     Route: 048

REACTIONS (1)
  - Meningitis bacterial [Fatal]
